FAERS Safety Report 6006093-2 (Version None)
Quarter: 2008Q4

REPORT INFORMATION
  Report Type: 
  Country: None (occurrence: None)
  Receive Date: 20081216
  Receipt Date: 20081216
  Transmission Date: 20090506
  Serious: No
  Sender: FDA-Public Use
  Company Number: None

PATIENT
  Sex: Female
  Weight: 72.7 kg

DRUGS (8)
  1. TEMOZOLOMIDE [Suspect]
     Dosage: 4160 MG
  2. TEMOZOLOMIDE [Suspect]
  3. TEMOZOLOMIDE [Suspect]
  4. ALTACE [Concomitant]
  5. DECADRON [Concomitant]
  6. INSULIN [Concomitant]
  7. KYTRIL [Concomitant]
  8. SYNTHROID [Concomitant]

REACTIONS (2)
  - ALANINE AMINOTRANSFERASE INCREASED [None]
  - PLATELET COUNT DECREASED [None]
